FAERS Safety Report 19601488 (Version 1)
Quarter: 2021Q3

REPORT INFORMATION
  Report Type: Spontaneous
  Country: US (occurrence: US)
  Receive Date: 20210722
  Receipt Date: 20210722
  Transmission Date: 20211014
  Serious: No
  Sender: FDA-Public Use
  Company Number: US-SEAGEN-2021SGN03736

PATIENT
  Sex: Female

DRUGS (4)
  1. TUKYSA [Suspect]
     Active Substance: TUCATINIB
     Dosage: 250 MG BID
  2. HERCEPTIN [Suspect]
     Active Substance: TRASTUZUMAB
     Indication: BREAST CANCER METASTATIC
     Dosage: UNK
     Dates: end: 20210714
  3. TUKYSA [Suspect]
     Active Substance: TUCATINIB
     Indication: BREAST CANCER METASTATIC
     Dosage: 300 MG, BID
     Route: 048
  4. CAPECITABINE. [Suspect]
     Active Substance: CAPECITABINE
     Indication: BREAST CANCER METASTATIC

REACTIONS (7)
  - Dry skin [Recovering/Resolving]
  - Skin fissures [Recovered/Resolved]
  - Dysphonia [Unknown]
  - Dyspnoea [Recovering/Resolving]
  - Tremor [Recovering/Resolving]
  - Erythema [Recovering/Resolving]
  - Peripheral coldness [Recovering/Resolving]
